FAERS Safety Report 20458214 (Version 1)
Quarter: 2022Q1

REPORT INFORMATION
  Report Type: Spontaneous
  Country: AU (occurrence: AU)
  Receive Date: 20220211
  Receipt Date: 20220211
  Transmission Date: 20220423
  Serious: Yes (Hospitalization)
  Sender: FDA-Public Use
  Company Number: AU-BoehringerIngelheim-2022-BI-151966

PATIENT
  Age: 80 Year
  Sex: Male

DRUGS (29)
  1. JARDIANCE [Suspect]
     Active Substance: EMPAGLIFLOZIN
     Indication: Product used for unknown indication
  2. VENLAFAXINE [Concomitant]
     Active Substance: VENLAFAXINE HYDROCHLORIDE
     Indication: Product used for unknown indication
     Dosage: TAKEN IN THE MORNING. MODIFIED RELEASE FORM.
  3. METFORMIN\SITAGLIPTIN [Concomitant]
     Active Substance: METFORMIN\SITAGLIPTIN
     Indication: Product used for unknown indication
     Dosage: 50MG SITAGLIPTIN, 1G METFORMIN MODIFIED RELEASE TABLET. ONE TABLET IN THE MORNING AND ONE TABLET IN
  4. ALBUTEROL [Concomitant]
     Active Substance: ALBUTEROL
     Indication: Dyspnoea
     Dosage: 1 TO 2 DOSES UP TO EVERY 4 HOURS WHEN REQUIRED
     Route: 055
  5. ROSUVASTATIN [Concomitant]
     Active Substance: ROSUVASTATIN
     Indication: Product used for unknown indication
     Dosage: TAKEN IN THE MORNING
  6. ACETAMINOPHEN [Concomitant]
     Active Substance: ACETAMINOPHEN
     Indication: Pain
     Dosage: 1 TABLET IN THE MORNING AND 1 TABLET IN THE EVENING .
  7. OTOCOMB OTIC [Concomitant]
     Indication: Product used for unknown indication
     Dosage: APPLIED TO EAR THREE TIMES A WEEK.
  8. OLANZAPINE [Concomitant]
     Active Substance: OLANZAPINE
     Indication: Sleep disorder
     Dosage: PLACE 1 WAFER ON TONGUE AND ALLOW IT TO DISSOLVER AT NIGHT WHEN REQUIRED
  9. OMEGA 3 [Concomitant]
     Active Substance: CAPSAICIN
     Indication: Product used for unknown indication
     Dosage: TAKEN IN THE MORNING
  10. MOMETASONE FUROATE [Concomitant]
     Active Substance: MOMETASONE FUROATE
     Indication: Product used for unknown indication
     Dosage: APPLY TO AFFECTED AREAS AS DIRECTED BY DOCTOR
  11. METOPROLOL [Concomitant]
     Active Substance: METOPROLOL
     Indication: Product used for unknown indication
     Dosage: 12.5MG IN MORNING AND 25MG IN EVENING.
  12. HYDROXOCOBALAMIN [Concomitant]
     Active Substance: HYDROXOCOBALAMIN
     Indication: Product used for unknown indication
     Route: 030
  13. NITROGLYCERIN [Concomitant]
     Active Substance: NITROGLYCERIN
     Indication: Product used for unknown indication
     Dosage: UP TO EVERY 4 HOURS WHEN REQUIRED
     Route: 060
  14. ESOMEPRAZOLE [Concomitant]
     Active Substance: ESOMEPRAZOLE
     Indication: Product used for unknown indication
     Dosage: TAKEN IN THE MORNING
  15. DENOSUMAB [Concomitant]
     Active Substance: DENOSUMAB
     Indication: Product used for unknown indication
     Dosage: AS DIRECTED BY THE DOCTOR
  16. DUTASTERIDE\TAMSULOSIN HYDROCHLORIDE [Concomitant]
     Active Substance: DUTASTERIDE\TAMSULOSIN HYDROCHLORIDE
     Indication: Product used for unknown indication
     Dosage: 500MCG DUTASTERIDE, 400 MICROGRAM TAMSULOSIN MODIFIED RELEASE CAPSULE TAKEN IN THE MORNING.
  17. CURCUMIN [Concomitant]
     Active Substance: CURCUMIN
     Indication: Product used for unknown indication
     Dosage: TAKEN AT MIDDAY
  18. DICLOFENAC [Concomitant]
     Active Substance: DICLOFENAC
     Indication: Product used for unknown indication
     Dosage: 10MG/G. APPLY UP TO EVERY 8 HOURS WHEN REQUIRED.
  19. CHOLECALCIFEROL [Concomitant]
     Active Substance: CHOLECALCIFEROL
     Indication: Product used for unknown indication
     Dosage: TAKE ONE 1.25MG CAPSULE IN THE MORNING
  20. CALCIUM CARBONATE [Concomitant]
     Active Substance: CALCIUM CARBONATE
     Indication: Product used for unknown indication
     Dosage: TAKEN IN THE MORNING
  21. BETAHISTINE [Concomitant]
     Active Substance: BETAHISTINE
     Indication: Dizziness
     Dosage: TAKE ONE-HALF TABLET TAKEN EVERY 8 HOURS WHEN REQUIRED FOR DIZZINESS
  22. ASPIRIN [Concomitant]
     Active Substance: ASPIRIN
     Indication: Product used for unknown indication
     Dosage: TAKEN IN THE MORNING
  23. sodium alginate[/calcium carbonate/sodium bicarbonate] [Concomitant]
     Indication: Product used for unknown indication
     Dosage: 500MG SODIUM ALGINATE, 160MG CALCIUM CARBONATE, 267MG SODIUM BICARBONATE PER 10ML LIQUID. TAKE 10ML
  24. TRIMETHOPRIM [Concomitant]
     Active Substance: TRIMETHOPRIM
     Indication: Product used for unknown indication
  25. CHOLECALCIFEROL [Concomitant]
     Active Substance: CHOLECALCIFEROL
     Indication: Product used for unknown indication
     Dosage: ONE TABLET AT MIDDAY
  26. [sodium alginate/]calcium carbonate[/sodium bicarbonate]] [Concomitant]
     Indication: Product used for unknown indication
     Dosage: 500MG SODIUM ALGINATE, 160MG CALCIUM CARBONATE, 267MG SODIUM BICARBONATE PER 10ML LIQUID. TAKE 10ML
  27. [sodium alginate/calcium carbonate]/sodium bicarbonate [Concomitant]
     Indication: Product used for unknown indication
     Dosage: 500MG SODIUM ALGINATE, 160MG CALCIUM CARBONATE, 267MG SODIUM BICARBONATE PER 10ML LIQUID. TAKE 10ML
  28. CEPHALEXIN [Concomitant]
     Active Substance: CEPHALEXIN
     Indication: Urinary tract infection
     Dosage: TAKE ONE CAPSULES IN MORNING AND ONE CAPSULE EVENING
  29. MAGNESIUM [Concomitant]
     Active Substance: MAGNESIUM
     Indication: Prophylaxis
     Dosage: TAKE TWO CAPSULES IN MORNING AND TWO CAPSULE EVENING

REACTIONS (10)
  - Escherichia urinary tract infection [Recovering/Resolving]
  - Hyponatraemia [Unknown]
  - Hyperkalaemia [Recovered/Resolved]
  - Headache [Unknown]
  - Myalgia [Unknown]
  - Arthralgia [Unknown]
  - Fatigue [Unknown]
  - Myalgia [Unknown]
  - Burning sensation [Unknown]
  - Sensory disturbance [Unknown]

NARRATIVE: CASE EVENT DATE: 20211101
